FAERS Safety Report 6650468-5 (Version None)
Quarter: 2010Q1

REPORT INFORMATION
  Report Type: 
  Country: None (occurrence: None)
  Receive Date: 20100325
  Receipt Date: 20100225
  Transmission Date: 20100710
  Serious: No
  Sender: FDA-Public Use
  Company Number: US-BIOGENIDEC-2010BI006802

PATIENT
  Age: 56 Year
  Sex: Female

DRUGS (3)
  1. AVONEX [Suspect]
     Indication: MULTIPLE SCLEROSIS
     Route: 030
     Dates: start: 20020308
  2. AVONEX [Suspect]
     Route: 030
     Dates: start: 20050324
  3. AVONEX [Suspect]
     Route: 030
     Dates: start: 20071102

REACTIONS (1)
  - INJECTION SITE SCAB [None]
